FAERS Safety Report 25538280 (Version 1)
Quarter: 2025Q3

REPORT INFORMATION
  Report Type: Spontaneous
  Country: US (occurrence: US)
  Receive Date: 20250710
  Receipt Date: 20250710
  Transmission Date: 20251021
  Serious: Yes (Other)
  Sender: BRISTOL-MYERS SQUIBB COMPANY
  Company Number: US-BRISTOL-MYERS SQUIBB COMPANY-2025-096859

PATIENT
  Age: 79 Year
  Sex: Female

DRUGS (2)
  1. ORENCIA [Suspect]
     Active Substance: ABATACEPT
     Indication: Rheumatoid arthritis
     Dosage: EVERY 7 DAYS
     Route: 058
     Dates: start: 202405, end: 20250314
  2. ORENCIA [Suspect]
     Active Substance: ABATACEPT
     Indication: Myositis

REACTIONS (4)
  - Hip fracture [Unknown]
  - Upper limb fracture [Unknown]
  - Asthenia [Unknown]
  - Fall [Unknown]
